FAERS Safety Report 23611845 (Version 1)
Quarter: 2024Q1

REPORT INFORMATION
  Report Type: Spontaneous
  Country: GB (occurrence: None)
  Receive Date: 20240308
  Receipt Date: 20240308
  Transmission Date: 20240410
  Serious: Yes (Other)
  Sender: FDA-Public Use
  Company Number: 2024A053202

PATIENT
  Sex: Male

DRUGS (1)
  1. DURVALUMAB [Suspect]
     Active Substance: DURVALUMAB
     Indication: Non-small cell lung cancer stage II
     Route: 041

REACTIONS (4)
  - Skin toxicity [Unknown]
  - Rash [Unknown]
  - Erythema [Unknown]
  - Stevens-Johnson syndrome [Unknown]
